FAERS Safety Report 4597614-5 (Version None)
Quarter: 2005Q1

REPORT INFORMATION
  Report Type: 
  Country: None (occurrence: None)
  Receive Date: 20050228
  Receipt Date: 20050228
  Transmission Date: 20050727
  Serious: Yes (Hospitalization)
  Sender: FDA-Public Use
  Company Number: None

PATIENT
  Sex: Male

DRUGS (14)
  1. HEPARIN [Suspect]
     Indication: HYPERCOAGULATION
     Dosage: 5000 UNITS Q 6 HR SQ
     Route: 058
     Dates: start: 20040521, end: 20040527
  2. COMBIVENT [Concomitant]
  3. ASPIRIN [Concomitant]
  4. CALCIUM ACETATE [Concomitant]
  5. EPO [Concomitant]
  6. FUROSEMIDE [Concomitant]
  7. REGULAR INSULIN [Concomitant]
  8. METOLAZONE [Concomitant]
  9. NEPHROCAPS [Concomitant]
  10. OMEPRAZOLE [Concomitant]
  11. SERTRALINE HCL [Concomitant]
  12. SIMVASTATIN [Concomitant]
  13. SODIUM BICARBONATE [Concomitant]
  14. OXYCODONE HCL [Concomitant]

REACTIONS (3)
  - NEPHROTIC SYNDROME [None]
  - PLATELET COUNT DECREASED [None]
  - THROMBOCYTOPENIA [None]
